FAERS Safety Report 11699983 (Version 1)
Quarter: 2015Q4

REPORT INFORMATION
  Report Type: Spontaneous
  Country: US (occurrence: None)
  Receive Date: 20151103
  Receipt Date: 20151103
  Transmission Date: 20160304
  Serious: Yes (Hospitalization, Other)
  Sender: FDA-Public Use
  Company Number: RAP-0080-2014

PATIENT
  Age: 2 Year
  Sex: Female
  Weight: 7.9 kg

DRUGS (11)
  1. LEVOCARNITINE. [Concomitant]
     Active Substance: LEVOCARNITINE
  2. SODIUM CHLORIDE. [Concomitant]
     Active Substance: SODIUM CHLORIDE
  3. ERGOCALCIFEROL. [Concomitant]
     Active Substance: ERGOCALCIFEROL
  4. CITRA-K (CITRIC ACID, POTASSIUM CITRATE) [Concomitant]
  5. SODIUM PHOSPHATE [Concomitant]
     Active Substance: SODIUM PHOSPHATE
  6. CARAFATE [Concomitant]
     Active Substance: SUCRALFATE
  7. FERROUS SULFATE [Concomitant]
     Active Substance: FERROUS SULFATE\FERROUS SULFATE, DRIED
  8. CYSTARAN (MERCAPTAMINE HYDROCHLORIDE) [Concomitant]
  9. LANSOPRAZOLE. [Concomitant]
     Active Substance: LANSOPRAZOLE
  10. PROCYSBI DELAYED-RELEASE [Suspect]
     Active Substance: CYSTEAMINE BITARTRATE
     Indication: CYSTINOSIS
     Dosage: 300MG, BID, G-TUBE
     Dates: start: 2013, end: 2014
  11. ZOFRAN [Concomitant]
     Active Substance: ONDANSETRON HYDROCHLORIDE

REACTIONS (6)
  - Feeding tube complication [None]
  - Blood potassium decreased [None]
  - Vomiting [None]
  - Device occlusion [None]
  - Weight increased [None]
  - Dehydration [None]

NARRATIVE: CASE EVENT DATE: 2013
